FAERS Safety Report 4374914-5 (Version None)
Quarter: 2004Q2

REPORT INFORMATION
  Report Type: 
  Country: None (occurrence: None)
  Receive Date: 20040609
  Receipt Date: 20040530
  Transmission Date: 20050107
  Serious: Yes (Other)
  Sender: FDA-Public Use
  Company Number: PHEH2004US06049

PATIENT
  Sex: Female

DRUGS (13)
  1. DIOVAN HCT [Suspect]
     Dosage: 1 DF, BID
     Route: 048
  2. LANOXIN [Concomitant]
  3. LANTUS [Concomitant]
  4. ATENOLOL [Concomitant]
  5. LIPITOR [Concomitant]
  6. ACTOS [Concomitant]
  7. LISINOPRIL [Concomitant]
  8. PLENDIL [Concomitant]
  9. LEXAPRO [Concomitant]
  10. ASPIRIN [Concomitant]
  11. ALPHAGAN [Concomitant]
     Indication: GLAUCOMA
  12. XALATAN [Concomitant]
     Indication: GLAUCOMA
  13. GLYBURIDE [Concomitant]

REACTIONS (2)
  - BLOOD PRESSURE INCREASED [None]
  - HEART RATE DECREASED [None]
